FAERS Safety Report 6894912-7 (Version None)
Quarter: 2010Q3

REPORT INFORMATION
  Report Type: 
  Country: None (occurrence: None)
  Receive Date: 20100730
  Receipt Date: 20100730
  Transmission Date: 20110219
  Serious: Yes (Hospitalization)
  Sender: FDA-Public Use
  Company Number: None

PATIENT
  Age: 71 Year
  Sex: Male
  Weight: 124.7392 kg

DRUGS (2)
  1. LEVAQUIN [Suspect]
     Indication: ANTI-INFECTIVE THERAPY
     Dosage: 250 MG. 1 A DAY
     Dates: start: 20100523, end: 20100527
  2. LEVAQUIN [Suspect]
     Indication: URINARY TRACT INFECTION
     Dosage: 250 MG. 1 A DAY
     Dates: start: 20100523, end: 20100527

REACTIONS (7)
  - DYSPNOEA [None]
  - ECONOMIC PROBLEM [None]
  - FEELING HOT [None]
  - GOUT [None]
  - HYPOAESTHESIA [None]
  - MUSCULOSKELETAL PAIN [None]
  - OEDEMA PERIPHERAL [None]
